FAERS Safety Report 9621038 (Version 3)
Quarter: 2013Q4

REPORT INFORMATION
  Report Type: Spontaneous
  Country: FR (occurrence: FR)
  Receive Date: 20131015
  Receipt Date: 20131025
  Transmission Date: 20140711
  Serious: Yes (Hospitalization, Other)
  Sender: FDA-Public Use
  Company Number: PHHY2013FR110707

PATIENT
  Age: 67 Year
  Sex: Male
  Weight: 80 kg

DRUGS (6)
  1. TASIGNA [Suspect]
     Indication: CHRONIC MYELOID LEUKAEMIA
     Dosage: 800 MG, QD
     Route: 048
     Dates: start: 20130907, end: 20130923
  2. JANUMET [Concomitant]
     Indication: DIABETES MELLITUS
     Route: 048
     Dates: start: 201108
  3. GLICLAZIDE [Concomitant]
     Indication: DIABETES MELLITUS
     Dosage: 80 MG, UNK
     Route: 048
  4. RAMIPRIL [Concomitant]
     Indication: HYPERTENSION
     Dosage: 1 DF, QD
     Route: 048
  5. LEVOTHYROX [Concomitant]
     Indication: HYPOTHYROIDISM
     Dosage: 125 MG, QD
     Route: 048
  6. KARDEGIC [Concomitant]
     Indication: ARTERIOSCLEROSIS
     Dosage: 75 MG, QD
     Route: 048

REACTIONS (14)
  - Pancreatic neoplasm [Recovering/Resolving]
  - Systemic inflammatory response syndrome [Recovering/Resolving]
  - General physical health deterioration [Recovering/Resolving]
  - Diabetes mellitus inadequate control [Recovering/Resolving]
  - Decreased appetite [Unknown]
  - Constipation [Unknown]
  - Abdominal distension [Recovering/Resolving]
  - Lipase increased [Recovering/Resolving]
  - Pancreatitis [Recovering/Resolving]
  - Abdominal pain [Recovered/Resolved]
  - Asthenia [Unknown]
  - Weight decreased [Recovering/Resolving]
  - Leukocytosis [Recovering/Resolving]
  - Hyperglycaemia [Unknown]
